FAERS Safety Report 5832136-2 (Version None)
Quarter: 2008Q3

REPORT INFORMATION
  Report Type: 
  Country: None (occurrence: None)
  Receive Date: 20080731
  Receipt Date: 20080731
  Transmission Date: 20090109
  Serious: No
  Sender: FDA-Public Use
  Company Number: None

PATIENT
  Age: 70 Year
  Sex: Male
  Weight: 108.8633 kg

DRUGS (1)
  1. METFORMIN HCL [Suspect]
     Indication: TYPE 2 DIABETES MELLITUS
     Dosage: 500  4XDAILY PO
     Route: 048
     Dates: start: 20080402, end: 20080723

REACTIONS (4)
  - ALOPECIA [None]
  - DIABETES MELLITUS INADEQUATE CONTROL [None]
  - HEPATIC ENZYME INCREASED [None]
  - POOR QUALITY DRUG ADMINISTERED [None]
